FAERS Safety Report 10204795 (Version 1)
Quarter: 2014Q2

REPORT INFORMATION
  Report Type: Spontaneous
  Country: US (occurrence: None)
  Receive Date: 20140527
  Receipt Date: 20140527
  Transmission Date: 20141212
  Serious: Yes (Death, Hospitalization)
  Sender: FDA-Public Use
  Company Number: None

PATIENT
  Age: 14 Year
  Sex: Male
  Weight: 55.1 kg

DRUGS (6)
  1. CYTARABINE [Suspect]
     Dates: start: 20140430
  2. DAUNORUBICIN [Suspect]
     Dates: start: 20140516
  3. METHOTREXATE [Suspect]
     Dates: start: 20140509
  4. PEG-L-ASPARAGINASE (PEGASPARGASE, ONCOSPAR) [Suspect]
     Dates: start: 20140505
  5. PREDNISONE [Suspect]
     Dates: start: 20140518
  6. VINCRISTINE SULFATE [Suspect]

REACTIONS (6)
  - Subdural haematoma [None]
  - Cerebral haematoma [None]
  - Brain midline shift [None]
  - Subarachnoid haemorrhage [None]
  - Vasospasm [None]
  - Brain death [None]
